FAERS Safety Report 24910646 (Version 1)
Quarter: 2025Q1

REPORT INFORMATION
  Report Type: Spontaneous
  Country: US (occurrence: US)
  Receive Date: 20250131
  Receipt Date: 20250131
  Transmission Date: 20250409
  Serious: No
  Sender: VERTEX
  Company Number: US-VERTEX PHARMACEUTICALS-2025-001339

PATIENT

DRUGS (1)
  1. ELEXACAFTOR\IVACAFTOR\TEZACAFTOR [Suspect]
     Active Substance: ELEXACAFTOR\IVACAFTOR\TEZACAFTOR
     Indication: Cystic fibrosis
     Route: 048

REACTIONS (6)
  - Infection [Unknown]
  - Oropharyngeal pain [Unknown]
  - Cough [Unknown]
  - Bronchospasm [Unknown]
  - Dyspnoea exertional [Unknown]
  - Nasal congestion [Unknown]
